FAERS Safety Report 6129294-1 (Version None)
Quarter: 2009Q1

REPORT INFORMATION
  Report Type: 
  Country: None (occurrence: None)
  Receive Date: 20090323
  Receipt Date: 20090323
  Transmission Date: 20090719
  Serious: Yes (Other)
  Sender: FDA-Public Use
  Company Number: None

PATIENT
  Sex: Female
  Weight: 55.3388 kg

DRUGS (2)
  1. ADVAIR DISKUS 100/50 [Suspect]
     Indication: ASTHMA
     Dosage: ONE INHALATION 2X DAILY BUCCAL
     Route: 002
     Dates: start: 20080203, end: 20080208
  2. ADVAIR DISKUS 100/50 [Suspect]
     Indication: NO THERAPEUTIC RESPONSE
     Dosage: ONE INHALATION 2X DAILY BUCCAL
     Route: 002
     Dates: start: 20080203, end: 20080208

REACTIONS (8)
  - ABDOMINAL DISTENSION [None]
  - CHEST DISCOMFORT [None]
  - DYSPEPSIA [None]
  - DYSPHAGIA [None]
  - GASTROOESOPHAGEAL REFLUX DISEASE [None]
  - HEADACHE [None]
  - IRRITABILITY [None]
  - MOOD ALTERED [None]
